FAERS Safety Report 22852938 (Version 2)
Quarter: 2023Q4

REPORT INFORMATION
  Report Type: Report from Study
  Country: US (occurrence: US)
  Receive Date: 20230823
  Receipt Date: 20231102
  Transmission Date: 20240109
  Serious: Yes (Hospitalization, Other)
  Sender: FDA-Public Use
  Company Number: US-ABBVIE-5377617

PATIENT
  Age: 63 Year
  Sex: Female
  Weight: 66 kg

DRUGS (1)
  1. HUMIRA [Suspect]
     Active Substance: ADALIMUMAB
     Indication: Rheumatoid arthritis
     Dosage: STRENGTH: 40 MG?CITARTE FREE
     Route: 058
     Dates: start: 20230630

REACTIONS (2)
  - Chest pain [Recovered/Resolved]
  - Vascular stenosis [Recovering/Resolving]

NARRATIVE: CASE EVENT DATE: 20230727
